FAERS Safety Report 4929179-X (Version None)
Quarter: 2006Q1

REPORT INFORMATION
  Report Type: 
  Country: None (occurrence: None)
  Receive Date: 20060301
  Receipt Date: 20051026
  Transmission Date: 20060701
  Serious: Yes (Hospitalization)
  Sender: FDA-Public Use
  Company Number: US-MERCK-0510USA09499

PATIENT
  Age: 57 Year
  Sex: Male
  Weight: 105 kg

DRUGS (20)
  1. VIOXX [Suspect]
     Indication: BACK PAIN
     Route: 048
     Dates: start: 20011009, end: 20030911
  2. VIOXX [Suspect]
     Indication: ARTHRALGIA
     Route: 048
     Dates: start: 20011009, end: 20030911
  3. CLARITIN [Concomitant]
     Route: 065
  4. CYCLOBENZAPRINE HYDROCHLORIDE [Concomitant]
     Route: 065
     Dates: start: 20011201, end: 20050929
  5. PEPCID [Concomitant]
     Route: 065
  6. LASIX [Concomitant]
     Indication: HYPERTENSION
     Route: 065
     Dates: start: 20020902, end: 20030506
  7. LASIX [Concomitant]
     Indication: OEDEMA
     Route: 065
     Dates: start: 20020902, end: 20030506
  8. APAP TAB [Concomitant]
     Route: 065
  9. LEVAQUIN [Concomitant]
     Route: 065
  10. NAPROXEN [Concomitant]
     Route: 065
     Dates: start: 20001110, end: 20020506
  11. NORVASC [Concomitant]
     Indication: CHEST PAIN
     Route: 065
     Dates: start: 19990930, end: 20030721
  12. POTASSIUM (UNSPECIFIED) [Concomitant]
     Route: 065
  13. TEQUIN [Concomitant]
     Route: 065
  14. ZITHROMAX [Concomitant]
     Route: 065
  15. ASPIRIN [Concomitant]
     Indication: PROPHYLAXIS
     Route: 065
  16. EFFEXOR [Concomitant]
     Indication: DEPRESSION
     Route: 065
     Dates: start: 20020319, end: 20020801
  17. SERZONE [Concomitant]
     Indication: DEPRESSION
     Route: 065
     Dates: start: 19990124, end: 20030930
  18. VICODIN [Concomitant]
     Route: 065
     Dates: start: 19990921, end: 20050929
  19. DICLOFENAC SODIUM [Concomitant]
     Route: 065
     Dates: start: 19991005, end: 20050828
  20. DARVOCET-N 50 [Concomitant]
     Route: 065
     Dates: start: 20010110

REACTIONS (5)
  - ANXIETY [None]
  - CORONARY ARTERY STENOSIS [None]
  - DEPRESSION [None]
  - HYPERTENSION [None]
  - STRESS [None]
